FAERS Safety Report 6627748-2 (Version None)
Quarter: 2010Q1

REPORT INFORMATION
  Report Type: 
  Country: None (occurrence: None)
  Receive Date: 20100311
  Receipt Date: 20100304
  Transmission Date: 20100710
  Serious: Yes (Other)
  Sender: FDA-Public Use
  Company Number: PHHY2010US13858

PATIENT
  Sex: Male

DRUGS (1)
  1. COMTAN [Suspect]

REACTIONS (1)
  - DYSPHAGIA [None]
